FAERS Safety Report 19759845 (Version 1)
Quarter: 2021Q3

REPORT INFORMATION
  Report Type: Spontaneous
  Country: US (occurrence: US)
  Receive Date: 20210830
  Receipt Date: 20210830
  Transmission Date: 20211014
  Serious: Yes (Disabling, Other)
  Sender: FDA-Public Use
  Company Number: US-SA-2021SA283457

PATIENT

DRUGS (2)
  1. RANITIDINE HYDROCHLORIDE. [Suspect]
     Active Substance: RANITIDINE HYDROCHLORIDE
     Dosage: UNK
  2. ZANTAC [Suspect]
     Active Substance: RANITIDINE HYDROCHLORIDE
     Route: 065
     Dates: start: 2004, end: 2019

REACTIONS (13)
  - Throat cancer [Unknown]
  - Gastric cancer [Unknown]
  - Injury [Unknown]
  - Insomnia [Unknown]
  - Physical disability [Unknown]
  - Emotional distress [Unknown]
  - Irritability [Unknown]
  - Oesophageal carcinoma [Unknown]
  - Nasal cavity cancer [Unknown]
  - Anxiety [Unknown]
  - Pain [Unknown]
  - Anhedonia [Unknown]
  - Depression [Unknown]
